FAERS Safety Report 6719329-7 (Version None)
Quarter: 2010Q2

REPORT INFORMATION
  Report Type: 
  Country: None (occurrence: None)
  Receive Date: 20100511
  Receipt Date: 20100428
  Transmission Date: 20101027
  Serious: Yes (Hospitalization)
  Sender: FDA-Public Use
  Company Number: PHHY2010CA27816

PATIENT
  Sex: Male

DRUGS (3)
  1. EXJADE [Suspect]
     Indication: MYELODYSPLASTIC SYNDROME
     Dosage: 10 MG, DAILY
  2. EXJADE [Suspect]
     Dosage: 500 MG, DAILY
     Route: 048
     Dates: start: 20100201, end: 20100221
  3. EXJADE [Suspect]
     Dosage: 1000 MG, DAILY

REACTIONS (3)
  - BIOPSY BONE MARROW [None]
  - NEUTROPENIA [None]
  - PYREXIA [None]
